FAERS Safety Report 13423176 (Version 1)
Quarter: 2017Q2

REPORT INFORMATION
  Report Type: Spontaneous
  Country: US (occurrence: US)
  Receive Date: 20170410
  Receipt Date: 20170410
  Transmission Date: 20170830
  Serious: Yes (Other)
  Sender: FDA-Public Use
  Company Number: US-DRREDDYS-USA/USA/17/0088415

PATIENT
  Sex: Female

DRUGS (4)
  1. SIROLIMUS. [Suspect]
     Active Substance: SIROLIMUS
     Indication: IMMUNOSUPPRESSION
     Route: 065
  2. PREDNISONE. [Suspect]
     Active Substance: PREDNISONE
     Indication: IMMUNOSUPPRESSION
     Route: 065
  3. TACROLIMUS. [Suspect]
     Active Substance: TACROLIMUS
     Indication: IMMUNOSUPPRESSION
     Route: 065
  4. ACITRETIN. [Suspect]
     Active Substance: ACITRETIN
     Indication: PROPHYLAXIS
     Route: 065

REACTIONS (5)
  - Peripheral artery stenosis [Unknown]
  - Skin ulcer [Recovered/Resolved]
  - Staphylococcus test positive [Unknown]
  - Disease progression [Recovered/Resolved]
  - Mucosal inflammation [Recovered/Resolved]
